FAERS Safety Report 16963859 (Version 3)
Quarter: 2022Q1

REPORT INFORMATION
  Report Type: Spontaneous
  Country: CZ (occurrence: CZ)
  Receive Date: 20191026
  Receipt Date: 20220129
  Transmission Date: 20220423
  Serious: Yes (Other)
  Sender: FDA-Public Use
  Company Number: CZ-ACCORD-158735

PATIENT
  Sex: Female
  Weight: 48 kg

DRUGS (4)
  1. FLUOROURACIL [Suspect]
     Active Substance: FLUOROURACIL
     Indication: Colorectal cancer metastatic
     Dosage: 6 CYCLE
  2. OXALIPLATIN [Suspect]
     Active Substance: OXALIPLATIN
     Indication: Colorectal cancer metastatic
     Dosage: 6 CYCLE
  3. LEUCOVORIN [Suspect]
     Active Substance: LEUCOVORIN
     Indication: Colorectal cancer metastatic
     Dosage: 6 CYCLE
  4. AVASTIN [Suspect]
     Active Substance: BEVACIZUMAB
     Indication: Colorectal cancer metastatic
     Dosage: 6 CYCLE

REACTIONS (5)
  - Gastrointestinal toxicity [Unknown]
  - Headache [Unknown]
  - Nausea [Unknown]
  - Vertigo [Unknown]
  - Blood pressure increased [Recovered/Resolved]
